FAERS Safety Report 13417790 (Version 1)
Quarter: 2017Q2

REPORT INFORMATION
  Report Type: Spontaneous
  Country: US (occurrence: US)
  Receive Date: 20170406
  Receipt Date: 20170406
  Transmission Date: 20170830
  Serious: No
  Sender: FDA-Public Use
  Company Number: US-ALLERGAN-1675902US

PATIENT
  Age: 44 Year
  Sex: Female

DRUGS (3)
  1. CANASA [Suspect]
     Active Substance: MESALAMINE
     Indication: RECTAL HAEMORRHAGE
  2. CANASA [Suspect]
     Active Substance: MESALAMINE
     Indication: DIARRHOEA
  3. CANASA [Suspect]
     Active Substance: MESALAMINE
     Indication: COLITIS ULCERATIVE
     Dosage: 1000 MG, QD
     Route: 054
     Dates: end: 20161120

REACTIONS (4)
  - Drug dose omission [Unknown]
  - Expired product administered [Unknown]
  - Drug ineffective [Unknown]
  - Off label use [Unknown]

NARRATIVE: CASE EVENT DATE: 20161120
